FAERS Safety Report 10091732 (Version 1)
Quarter: 2014Q2

REPORT INFORMATION
  Report Type: Spontaneous
  Country: ES (occurrence: ES)
  Receive Date: 20140421
  Receipt Date: 20140421
  Transmission Date: 20141212
  Serious: Yes (Other)
  Sender: FDA-Public Use
  Company Number: ES-ABBVIE-14P-144-1227902-00

PATIENT
  Age: 9 Year
  Sex: Male

DRUGS (3)
  1. VALPROIC ACID [Suspect]
     Indication: CONVULSION
     Dosage: FREQUENCY UNKNOWN
     Route: 065
  2. CARBAMAZEPINE [Suspect]
     Indication: CONVULSION
     Dosage: FREQUENCY UNKNOWN
     Route: 065
  3. PHENYTOIN [Suspect]
     Indication: CONVULSION
     Dosage: FREQUENCY UNKNOWN
     Route: 065

REACTIONS (4)
  - Drug reaction with eosinophilia and systemic symptoms [Unknown]
  - Rash papular [Unknown]
  - Pruritus [Unknown]
  - Alanine aminotransferase increased [Unknown]
